FAERS Safety Report 15222499 (Version 2)
Quarter: 2018Q3

REPORT INFORMATION
  Report Type: Spontaneous
  Country: DE (occurrence: DE)
  Receive Date: 20180731
  Receipt Date: 20180914
  Transmission Date: 20181010
  Serious: Yes (Hospitalization, Other)
  Sender: FDA-Public Use
  Company Number: DE-OTSUKA-2018_027034

PATIENT
  Age: 37 Year
  Sex: Female

DRUGS (4)
  1. OPIPRAMOL [Concomitant]
     Active Substance: OPIPRAMOL
     Dosage: 50 MG, UNK
     Route: 065
     Dates: start: 201803
  2. ABILIFY [Suspect]
     Active Substance: ARIPIPRAZOLE
     Indication: BIPOLAR I DISORDER
     Dosage: 5 MG, QD
     Route: 065
     Dates: start: 20160329, end: 201606
  3. ABILIFY [Suspect]
     Active Substance: ARIPIPRAZOLE
     Dosage: DOWNTITRATION FROM 5MG 1?0?0
     Route: 065
     Dates: start: 20160630
  4. OPIPRAMOL [Concomitant]
     Active Substance: OPIPRAMOL
     Indication: BIPOLAR I DISORDER
     Dosage: 25 MG, BID
     Route: 065
     Dates: start: 201603

REACTIONS (4)
  - Suicidal ideation [Unknown]
  - Underdose [Unknown]
  - Mania [Unknown]
  - Parkinsonism [Recovering/Resolving]

NARRATIVE: CASE EVENT DATE: 201603
